FAERS Safety Report 17752894 (Version 2)
Quarter: 2020Q2

REPORT INFORMATION
  Report Type: Spontaneous
  Country: BR (occurrence: BR)
  Receive Date: 20200506
  Receipt Date: 20200616
  Transmission Date: 20200714
  Serious: Yes (Other)
  Sender: FDA-Public Use
  Company Number: BR-BIOMARINAP-BR-2020-130001

PATIENT
  Age: 21 Year
  Sex: Female
  Weight: 55.6 kg

DRUGS (3)
  1. NAGLAZYME [Suspect]
     Active Substance: GALSULFASE
     Indication: MUCOPOLYSACCHARIDOSIS VI
     Dosage: QW
     Route: 042
  2. PHENYTOIN. [Concomitant]
     Active Substance: PHENYTOIN
     Indication: SEIZURE
     Dosage: 100 MILLIGRAM, BID
  3. PHENYTOIN. [Concomitant]
     Active Substance: PHENYTOIN
     Dosage: 200 MILLIGRAM, QD

REACTIONS (5)
  - Product dose omission [Unknown]
  - Seizure [Not Recovered/Not Resolved]
  - Swelling [Recovered/Resolved]
  - Poor venous access [Unknown]
  - Oxygen saturation decreased [Not Recovered/Not Resolved]

NARRATIVE: CASE EVENT DATE: 20200425
